FAERS Safety Report 6188083-2 (Version None)
Quarter: 2009Q2

REPORT INFORMATION
  Report Type: 
  Country: None (occurrence: None)
  Receive Date: 20090513
  Receipt Date: 20090504
  Transmission Date: 20091009
  Serious: Yes (Hospitalization, Other)
  Sender: FDA-Public Use
  Company Number: PHEH2005US12254

PATIENT
  Sex: Female

DRUGS (7)
  1. AREDIA [Suspect]
     Indication: BREAST CANCER
     Dosage: 90 MG, QMO
     Dates: start: 20021212, end: 20040610
  2. ZOMETA [Suspect]
     Indication: BREAST CANCER
     Dosage: 4 MG, QMO
     Dates: start: 20020507, end: 20021114
  3. FEMARA [Concomitant]
     Indication: BREAST CANCER
     Dates: start: 20040319
  4. EFFEXOR [Concomitant]
     Indication: HOT FLUSH
  5. SYNTHROID [Concomitant]
  6. CELEBREX [Concomitant]
  7. CYTOMEL [Concomitant]

REACTIONS (32)
  - ANGIOEDEMA [None]
  - ANXIETY [None]
  - BONE DEBRIDEMENT [None]
  - BONE DISORDER [None]
  - BUNDLE BRANCH BLOCK LEFT [None]
  - BUNION OPERATION [None]
  - DEBRIDEMENT [None]
  - DECREASED INTEREST [None]
  - DEEP VEIN THROMBOSIS [None]
  - DEFORMITY [None]
  - EMOTIONAL DISTRESS [None]
  - ENDODONTIC PROCEDURE [None]
  - FOOT OPERATION [None]
  - GASTROOESOPHAGEAL REFLUX DISEASE [None]
  - GENERAL PHYSICAL HEALTH DETERIORATION [None]
  - GINGIVAL ERYTHEMA [None]
  - GINGIVAL SWELLING [None]
  - GINGIVAL ULCERATION [None]
  - HYPOPHAGIA [None]
  - JOINT ARTHROPLASTY [None]
  - LIFE EXPECTANCY SHORTENED [None]
  - OEDEMA MOUTH [None]
  - ONYCHOMYCOSIS [None]
  - ORAL PAIN [None]
  - OSTEONECROSIS [None]
  - OSTEOTOMY [None]
  - PERIODONTITIS [None]
  - SOFT TISSUE INFECTION [None]
  - SWOLLEN TONGUE [None]
  - TOE OPERATION [None]
  - TOOTH ABSCESS [None]
  - TOOTH EXTRACTION [None]
